FAERS Safety Report 10240906 (Version 1)
Quarter: 2014Q2

REPORT INFORMATION
  Report Type: Report from Study
  Country: US (occurrence: US)
  Receive Date: 20140617
  Receipt Date: 20140617
  Transmission Date: 20141212
  Serious: Yes (Other)
  Sender: FDA-Public Use
  Company Number: US-BAYER-2014-089791

PATIENT
  Sex: 0

DRUGS (2)
  1. RIVAROXABAN [Suspect]
     Indication: THROMBOSIS PROPHYLAXIS
     Dosage: 10 MG, DAILY
     Route: 048
  2. ACETYLSALICYLIC ACID({=100 MG) [Suspect]
     Indication: THROMBOSIS PROPHYLAXIS
     Dosage: UNK

REACTIONS (1)
  - Post procedural haemorrhage [None]
